FAERS Safety Report 20558897 (Version 2)
Quarter: 2022Q1

REPORT INFORMATION
  Report Type: Report from Study
  Country: US (occurrence: US)
  Receive Date: 20220307
  Receipt Date: 20220315
  Transmission Date: 20220423
  Serious: Yes (Other)
  Sender: FDA-Public Use
  Company Number: US-SA-SAC20220225000480

PATIENT
  Age: 52 Year
  Sex: Female

DRUGS (18)
  1. TERIFLUNOMIDE [Suspect]
     Active Substance: TERIFLUNOMIDE
     Indication: Multiple sclerosis
     Dosage: 14 MG, QD
     Route: 048
     Dates: start: 20160831, end: 2021
  2. KESIMPTA [Suspect]
     Active Substance: OFATUMUMAB
  3. ROPINIROLE HYDROCHLORIDE [Concomitant]
     Active Substance: ROPINIROLE HYDROCHLORIDE
     Indication: Restless legs syndrome
  4. TRAMADOL HCL [Concomitant]
     Active Substance: TRAMADOL HYDROCHLORIDE
  5. COLLAGEN [Concomitant]
     Active Substance: COLLAGEN
  6. CURCUMIN [Concomitant]
     Active Substance: CURCUMIN
  7. BIOTIN [Concomitant]
     Active Substance: BIOTIN
  8. XANAX [Concomitant]
     Active Substance: ALPRAZOLAM
  9. CANNABIS SATIVA SUBSP. INDICA TOP [Concomitant]
     Active Substance: CANNABIS SATIVA SUBSP. INDICA TOP
  10. VITAMINS [Concomitant]
     Active Substance: VITAMINS
  11. PENICILLIN [Concomitant]
     Active Substance: PENICILLIN
     Indication: Hypersensitivity
  12. ERYTHROMYCIN [Concomitant]
     Active Substance: ERYTHROMYCIN
     Indication: Hypersensitivity
  13. BIFIDOBACTERIUM ANIMALIS LACTIS [Concomitant]
     Active Substance: BIFIDOBACTERIUM ANIMALIS LACTIS
  14. VITAMIN B12 [Concomitant]
     Active Substance: CYANOCOBALAMIN
     Dosage: 2 DF
  15. FISH OIL [Concomitant]
     Active Substance: FISH OIL
  16. VITAMIN D NOS [Concomitant]
     Active Substance: VITAMIN D NOS
  17. HERBALS\TURMERIC [Concomitant]
     Active Substance: HERBALS\TURMERIC
  18. FLEXERIL [Concomitant]
     Active Substance: CYCLOBENZAPRINE HYDROCHLORIDE

REACTIONS (14)
  - Multiple sclerosis [Not Recovered/Not Resolved]
  - Multiple sclerosis relapse [Not Recovered/Not Resolved]
  - Back pain [Unknown]
  - Swelling [Unknown]
  - Musculoskeletal stiffness [Unknown]
  - Weight increased [Unknown]
  - Abdominal pain upper [Unknown]
  - Genital herpes [Unknown]
  - Fatigue [Unknown]
  - Swelling [Not Recovered/Not Resolved]
  - Stress [Not Recovered/Not Resolved]
  - Chest discomfort [Not Recovered/Not Resolved]
  - Musculoskeletal discomfort [Not Recovered/Not Resolved]
  - Dyspnoea [Not Recovered/Not Resolved]

NARRATIVE: CASE EVENT DATE: 20210101
